FAERS Safety Report 16108110 (Version 2)
Quarter: 2019Q1

REPORT INFORMATION
  Report Type: Report from Study
  Country: US (occurrence: US)
  Receive Date: 20190322
  Receipt Date: 20190329
  Transmission Date: 20190418
  Serious: Yes (Hospitalization)
  Sender: FDA-Public Use
  Company Number: US-ACTELION-A-US2019-187950

PATIENT
  Age: 51 Year
  Sex: Female

DRUGS (1)
  1. OPSUMIT [Suspect]
     Active Substance: MACITENTAN
     Indication: PULMONARY ARTERIAL HYPERTENSION
     Dosage: 10 MG, QD
     Route: 048
     Dates: start: 201902

REACTIONS (9)
  - Oropharyngeal pain [Unknown]
  - Nasal congestion [Unknown]
  - Atrial fibrillation [Unknown]
  - Anaemia [Not Recovered/Not Resolved]
  - Nausea [Unknown]
  - Pneumonia [Unknown]
  - Cardiac disorder [Unknown]
  - Product dose omission [Unknown]
  - Back pain [Not Recovered/Not Resolved]

NARRATIVE: CASE EVENT DATE: 201902
